FAERS Safety Report 4440486-X (Version None)
Quarter: 2004Q3

REPORT INFORMATION
  Report Type: 
  Country: None (occurrence: None)
  Receive Date: 20040831
  Receipt Date: 20040506
  Transmission Date: 20050211
  Serious: No
  Sender: FDA-Public Use
  Company Number: 701961

PATIENT
  Age: 74 Year
  Sex: Female

DRUGS (1)
  1. AMEVIVE [Suspect]
     Indication: PSORIASIS
     Dosage: 15 MG QW IM
     Route: 030
     Dates: start: 20040401

REACTIONS (5)
  - BRONCHITIS [None]
  - CHILLS [None]
  - INFLUENZA [None]
  - PYREXIA [None]
  - VOMITING [None]
